FAERS Safety Report 14586329 (Version 1)
Quarter: 2018Q1

REPORT INFORMATION
  Report Type: Spontaneous
  Country: US (occurrence: US)
  Receive Date: 20180301
  Receipt Date: 20180301
  Transmission Date: 20180509
  Serious: No
  Sender: FDA-Public Use
  Company Number: US-TEVA-2017-US-826323

PATIENT
  Sex: Female

DRUGS (2)
  1. ZENCHENT [Suspect]
     Active Substance: ETHINYL ESTRADIOL\NORETHINDRONE
     Indication: CONTRACEPTION
     Route: 065
  2. OVCON 35 [Suspect]
     Active Substance: ETHINYL ESTRADIOL\NORETHINDRONE
     Indication: CONTRACEPTION
     Route: 065

REACTIONS (7)
  - Diarrhoea [Unknown]
  - Product substitution issue [Unknown]
  - Nausea [Unknown]
  - Maternal exposure during pregnancy [Unknown]
  - Vomiting in pregnancy [Unknown]
  - Live birth [Unknown]
  - Feeling abnormal [Unknown]
